FAERS Safety Report 24865424 (Version 1)
Quarter: 2025Q1

REPORT INFORMATION
  Report Type: Report from Study
  Country: IN (occurrence: IN)
  Receive Date: 20250121
  Receipt Date: 20250121
  Transmission Date: 20250408
  Serious: Yes (Hospitalization)
  Sender: ROCHE
  Company Number: IN-ROCHE-10000146948

PATIENT
  Age: 83 Year
  Sex: Female

DRUGS (2)
  1. TECENTRIQ [Suspect]
     Active Substance: ATEZOLIZUMAB
     Indication: Hepatocellular carcinoma
     Route: 042
     Dates: start: 20240805
  2. TECENTRIQ [Suspect]
     Active Substance: ATEZOLIZUMAB
     Route: 042

REACTIONS (8)
  - Infection [Unknown]
  - Chills [Unknown]
  - Depressed level of consciousness [Unknown]
  - Septic encephalopathy [Unknown]
  - Urosepsis [Unknown]
  - Dysarthria [Unknown]
  - Altered state of consciousness [Unknown]
  - Hypophagia [Unknown]
